FAERS Safety Report 14669339 (Version 1)
Quarter: 2018Q1

REPORT INFORMATION
  Report Type: Spontaneous
  Country: US (occurrence: US)
  Receive Date: 20180321
  Receipt Date: 20180321
  Transmission Date: 20180509
  Serious: Yes (Hospitalization, Disabling)
  Sender: FDA-Public Use
  Company Number: None

PATIENT
  Age: 50 Year
  Sex: Female
  Weight: 58.05 kg

DRUGS (4)
  1. ATORVASTATIN [Suspect]
     Active Substance: ATORVASTATIN
     Indication: BLOOD CHOLESTEROL INCREASED
     Dosage: ?          QUANTITY:1 TABLET(S);?
     Route: 048
     Dates: start: 20170504, end: 20180303
  2. METOPROLOL. [Concomitant]
     Active Substance: METOPROLOL
  3. PLAVIX [Concomitant]
     Active Substance: CLOPIDOGREL BISULFATE
  4. ADVIL [Concomitant]
     Active Substance: IBUPROFEN

REACTIONS (15)
  - Insomnia [None]
  - Vision blurred [None]
  - Heart rate increased [None]
  - Arthralgia [None]
  - Gait disturbance [None]
  - Irritability [None]
  - Memory impairment [None]
  - Blood pressure increased [None]
  - Anxiety [None]
  - Fear [None]
  - Nervous system disorder [None]
  - Myalgia [None]
  - Panic attack [None]
  - Dysarthria [None]
  - Tremor [None]

NARRATIVE: CASE EVENT DATE: 20170505
